FAERS Safety Report 20767213 (Version 2)
Quarter: 2022Q3

REPORT INFORMATION
  Report Type: Other
  Country: CA (occurrence: None)
  Receive Date: 20220429
  Receipt Date: 20220822
  Transmission Date: 20221027
  Serious: Yes (Other)
  Sender: FDA-Public Use
  Company Number: CA-ROCHE-3086436

PATIENT
  Age: 66 Year
  Sex: Female

DRUGS (21)
  1. RITUXAN [Suspect]
     Active Substance: RITUXIMAB
     Indication: Rheumatoid arthritis
     Route: 042
     Dates: start: 20120712, end: 20140605
  2. ACTEMRA [Suspect]
     Active Substance: TOCILIZUMAB
     Indication: Rheumatoid arthritis
     Route: 058
     Dates: start: 20220607
  3. ACTONEL [Concomitant]
     Active Substance: RISEDRONATE SODIUM
  4. ARAVA [Concomitant]
     Active Substance: LEFLUNOMIDE
  5. ASPIRIN [Concomitant]
     Active Substance: ASPIRIN
  6. AVAPRO [Concomitant]
     Active Substance: IRBESARTAN
  7. BENADRYL [Concomitant]
     Active Substance: DIPHENHYDRAMINE HYDROCHLORIDE
  8. CRESTOR [Concomitant]
     Active Substance: ROSUVASTATIN CALCIUM
  9. CLOBETASOL [Concomitant]
     Active Substance: CLOBETASOL
  10. FLOVENT [Concomitant]
     Active Substance: FLUTICASONE PROPIONATE
  11. FOLIC ACID [Concomitant]
     Active Substance: FOLIC ACID
  12. LASIX [Concomitant]
     Active Substance: FUROSEMIDE
  13. MAGNESIUM [Concomitant]
     Active Substance: MAGNESIUM
  14. NEXIUM [Concomitant]
     Active Substance: ESOMEPRAZOLE MAGNESIUM
  15. PLAQUENIL [Concomitant]
     Active Substance: HYDROXYCHLOROQUINE SULFATE
  16. PLAVIX [Concomitant]
     Active Substance: CLOPIDOGREL BISULFATE
  17. POTASSIUM [Concomitant]
     Active Substance: POTASSIUM
  18. SERC (CANADA) [Concomitant]
  19. TRAMADOL [Concomitant]
     Active Substance: TRAMADOL
  20. VENTOLIN [Concomitant]
     Active Substance: ALBUTEROL SULFATE
  21. NASONEX [Concomitant]
     Active Substance: MOMETASONE FUROATE

REACTIONS (3)
  - Bronchiectasis [Unknown]
  - Cellulitis [Unknown]
  - COVID-19 [Unknown]

NARRATIVE: CASE EVENT DATE: 20220815
